FAERS Safety Report 5989756-4 (Version None)
Quarter: 2008Q4

REPORT INFORMATION
  Report Type: 
  Country: None (occurrence: None)
  Receive Date: 20081209
  Receipt Date: 20081128
  Transmission Date: 20090506
  Serious: Yes (Hospitalization)
  Sender: FDA-Public Use
  Company Number: ADE2008-0401

PATIENT
  Age: 46 Year
  Sex: Female

DRUGS (6)
  1. METFORMIN HCL [Suspect]
     Indication: TYPE 2 DIABETES MELLITUS
     Dosage: 850 MG - TID - ORAL
     Route: 048
  2. CITALOPRAM [Concomitant]
  3. NOVOLOG MIX 70/30 [Concomitant]
  4. PROCYCLIDINE HYDROCHLORIDE 2MG TAB [Concomitant]
  5. QUETIAPINE FUMARATE [Concomitant]
  6. RAMIPRIL [Concomitant]

REACTIONS (5)
  - DEHYDRATION [None]
  - HAEMODIALYSIS [None]
  - LACTIC ACIDOSIS [None]
  - OVERDOSE [None]
  - RENAL FAILURE ACUTE [None]
